FAERS Safety Report 22378942 (Version 2)
Quarter: 2023Q2

REPORT INFORMATION
  Report Type: Report from Study
  Country: CA (occurrence: CA)
  Receive Date: 20230529
  Receipt Date: 20230531
  Transmission Date: 20230722
  Serious: Yes (Hospitalization, Other)
  Sender: FDA-Public Use
  Company Number: CA-JNJFOC-20230557852

PATIENT
  Age: 63 Year
  Sex: Male

DRUGS (2)
  1. STELARA [Suspect]
     Active Substance: USTEKINUMAB
     Indication: Crohn^s disease
     Route: 058
     Dates: start: 20190724
  2. STELARA [Suspect]
     Active Substance: USTEKINUMAB
     Dosage: ON 24-MAY-2023, THE PATIENT RECEIVED 26TH USTEKINUMAB OF 390 MG AND PARTIAL HARVEY-BRADSHAW COMPLETE
     Route: 042

REACTIONS (10)
  - Intestinal resection [Unknown]
  - Post procedural complication [Recovering/Resolving]
  - Haematochezia [Not Recovered/Not Resolved]
  - Renal disorder [Not Recovered/Not Resolved]
  - Cardiac disorder [Not Recovered/Not Resolved]
  - General physical health deterioration [Unknown]
  - Abdominal pain [Not Recovered/Not Resolved]
  - Frequent bowel movements [Unknown]
  - Diarrhoea [Unknown]
  - Off label use [Unknown]

NARRATIVE: CASE EVENT DATE: 20221031
